FAERS Safety Report 10240261 (Version 6)
Quarter: 2015Q1

REPORT INFORMATION
  Report Type: Report from Study
  Country: IT (occurrence: IT)
  Receive Date: 20140617
  Receipt Date: 20150212
  Transmission Date: 20150720
  Serious: Yes (Hospitalization)
  Sender: FDA-Public Use
  Company Number: PHHY2014IT071462

PATIENT
  Age: 35 Year
  Sex: Male
  Weight: 65 kg

DRUGS (3)
  1. DIBASE [Concomitant]
     Active Substance: CHOLECALCIFEROL
     Indication: VITAMIN D DEFICIENCY
     Dosage: 25 OT, UNK
     Route: 065
     Dates: start: 20140423
  2. TIOBEC (THIOCTIC ACID) [Concomitant]
     Indication: PRODUCT USED FOR UNKNOWN INDICATION
     Dosage: 800 MG, UNK
     Route: 065
     Dates: start: 20140423
  3. GILENYA [Suspect]
     Active Substance: FINGOLIMOD HYDROCHLORIDE
     Indication: MULTIPLE SCLEROSIS
     Dosage: 0.5 MG, QD
     Route: 048
     Dates: start: 20140520, end: 20140520

REACTIONS (2)
  - Electrocardiogram QT prolonged [Recovered/Resolved]
  - Atrioventricular block second degree [Recovered/Resolved]

NARRATIVE: CASE EVENT DATE: 20140520
